FAERS Safety Report 4464341-4 (Version None)
Quarter: 2004Q4

REPORT INFORMATION
  Report Type: 
  Country: None (occurrence: None)
  Receive Date: 20041001
  Receipt Date: 20030605
  Transmission Date: 20050328
  Serious: Yes (Hospitalization, Disabling, Other)
  Sender: FDA-Public Use
  Company Number: US-MERCK-0306USA00816

PATIENT
  Age: 33 Year
  Sex: Female
  Weight: 97 kg

DRUGS (1)
  1. VIOXX [Suspect]
     Route: 048

REACTIONS (28)
  - ADVERSE EVENT [None]
  - ANXIETY [None]
  - BACK PAIN [None]
  - BRONCHITIS [None]
  - BRONCHITIS ACUTE [None]
  - CEREBROVASCULAR ACCIDENT [None]
  - CHRONIC OBSTRUCTIVE AIRWAYS DISEASE [None]
  - COUGH [None]
  - DYSPNOEA [None]
  - ELECTROCARDIOGRAM POOR R-WAVE PROGRESSION [None]
  - HAEMATOCRIT DECREASED [None]
  - HEADACHE [None]
  - HYPERSENSITIVITY [None]
  - HYPERTENSION [None]
  - INCREASED UPPER AIRWAY SECRETION [None]
  - INFARCTION [None]
  - INSOMNIA [None]
  - MONARTHRITIS [None]
  - MUSCLE SPASMS [None]
  - NASOPHARYNGITIS [None]
  - NEUROLEPTIC MALIGNANT SYNDROME [None]
  - PAIN [None]
  - PHARYNGOLARYNGEAL PAIN [None]
  - SINUSITIS [None]
  - SPONDYLITIS [None]
  - STRESS SYMPTOMS [None]
  - VASCULITIS [None]
  - VOMITING [None]
